FAERS Safety Report 4778383-2 (Version None)
Quarter: 2005Q3

REPORT INFORMATION
  Report Type: 
  Country: None (occurrence: None)
  Receive Date: 20050926
  Receipt Date: 20050902
  Transmission Date: 20060218
  Serious: Yes (Life-Threatening, Hospitalization, Disabling, Other)
  Sender: FDA-Public Use
  Company Number: CR-GLAXOSMITHKLINE-A0575580A

PATIENT
  Age: 38 Year
  Sex: Female

DRUGS (2)
  1. LAMICTAL [Suspect]
     Indication: BIPOLAR I DISORDER
     Route: 048
     Dates: start: 20040112, end: 20040118
  2. ZYPREXA [Concomitant]

REACTIONS (10)
  - CONFUSIONAL STATE [None]
  - HEADACHE [None]
  - HEPATOMEGALY [None]
  - JAUNDICE [None]
  - LIVER DISORDER [None]
  - LYMPHADENOPATHY [None]
  - MUSCLE RIGIDITY [None]
  - PYREXIA [None]
  - TUNNEL VISION [None]
  - VOMITING [None]
